FAERS Safety Report 5002587-7 (Version None)
Quarter: 2006Q2

REPORT INFORMATION
  Report Type: 
  Country: None (occurrence: None)
  Receive Date: 20060515
  Receipt Date: 20051104
  Transmission Date: 20061013
  Serious: Yes (Hospitalization)
  Sender: FDA-Public Use
  Company Number: US-MERCK-0511USA01049

PATIENT
  Age: 78 Year
  Sex: Female
  Weight: 73 kg

DRUGS (28)
  1. VIOXX [Suspect]
     Indication: ARTHRITIS
     Route: 048
     Dates: start: 20000501, end: 20030617
  2. ASPIRIN [Concomitant]
     Route: 065
  3. KLOR-CON [Concomitant]
     Route: 065
     Dates: start: 20030101
  4. CYANOCOBALAMIN [Concomitant]
     Route: 065
  5. PREVACID [Concomitant]
     Route: 065
  6. HYDROCHLOROTHIAZIDE [Concomitant]
     Route: 065
  7. PROMETHAZINE [Concomitant]
     Route: 065
  8. FOLIC ACID [Concomitant]
     Route: 065
  9. NOVOLIN [Concomitant]
     Route: 065
  10. AMBIEN [Concomitant]
     Route: 065
  11. GLYBURIDE [Concomitant]
     Route: 065
  12. PENICILLIN (UNSPECIFIED) [Concomitant]
     Route: 065
  13. LANTUS [Concomitant]
     Route: 065
  14. PAXIL [Concomitant]
     Route: 065
  15. BECONASE [Concomitant]
     Route: 065
  16. HYZAAR [Concomitant]
     Route: 065
     Dates: start: 19980101
  17. GABAPENTIN [Concomitant]
     Route: 065
  18. ALLEGRA [Concomitant]
     Route: 065
  19. ALPRAZOLAM [Concomitant]
     Route: 065
  20. MIACALCIN [Concomitant]
     Route: 065
  21. CEPHALEXIN [Concomitant]
     Route: 065
  22. ERY-TAB [Concomitant]
     Route: 065
  23. ARTHROTEC [Concomitant]
     Route: 065
  24. FOSAMAX [Concomitant]
     Route: 065
     Dates: start: 20030101
  25. PREDNISONE [Concomitant]
     Route: 065
     Dates: start: 19980101
  26. COMBIVENT [Concomitant]
     Route: 065
  27. ZITHROMAX [Concomitant]
     Route: 065
  28. TYLENOL (CAPLET) [Concomitant]
     Route: 065
     Dates: start: 19900101

REACTIONS (9)
  - CARDIAC DISORDER [None]
  - DYSPEPSIA [None]
  - FRACTURE [None]
  - HERNIA [None]
  - HERPES ZOSTER [None]
  - MULTIPLE FRACTURES [None]
  - OEDEMA PERIPHERAL [None]
  - PNEUMONIA [None]
  - THROMBOSIS [None]
